FAERS Safety Report 10137848 (Version 2)
Quarter: 2014Q2

REPORT INFORMATION
  Report Type: Spontaneous
  Country: BR (occurrence: BR)
  Receive Date: 20140429
  Receipt Date: 20140429
  Transmission Date: 20141212
  Serious: Yes (Hospitalization)
  Sender: FDA-Public Use
  Company Number: BR-SA-2013SA101870

PATIENT
  Sex: Male
  Weight: 3.05 kg

DRUGS (5)
  1. CLEXANE [Suspect]
     Indication: FOETAL EXPOSURE DURING PREGNANCY
     Dosage: FORM- SYRINGE
     Route: 064
     Dates: start: 20130827, end: 20130927
  2. CLEXANE [Suspect]
     Indication: FOETAL EXPOSURE DURING PREGNANCY
     Route: 064
     Dates: start: 20140120, end: 20140205
  3. AAS [Concomitant]
     Indication: FOETAL EXPOSURE DURING PREGNANCY
     Route: 064
     Dates: start: 201307
  4. METHYLDOPA [Concomitant]
     Indication: FOETAL EXPOSURE DURING PREGNANCY
     Route: 064
  5. ENOXAPARIN SODIUM [Concomitant]
     Indication: FOETAL EXPOSURE DURING PREGNANCY
     Route: 064

REACTIONS (4)
  - Respiratory distress [Recovered/Resolved]
  - Foetal exposure during pregnancy [Unknown]
  - Premature baby [Unknown]
  - Platelet count decreased [Recovered/Resolved]
